FAERS Safety Report 17293029 (Version 1)
Quarter: 2020Q1

REPORT INFORMATION
  Report Type: Spontaneous
  Country: GB (occurrence: GB)
  Receive Date: 20200121
  Receipt Date: 20200121
  Transmission Date: 20200409
  Serious: Yes (Hospitalization)
  Sender: FDA-Public Use
  Company Number: GB-TEVA-2020-GB-1169941

PATIENT
  Age: 72 Year
  Sex: Male
  Weight: 74.2 kg

DRUGS (13)
  1. DEXAMETHASONE. [Concomitant]
     Active Substance: DEXAMETHASONE
  2. RAMIPRIL. [Concomitant]
     Active Substance: RAMIPRIL
  3. ATRACURIUM [Concomitant]
     Active Substance: ATRACURIUM
  4. CLENIL MODULITE [Concomitant]
     Active Substance: BECLOMETHASONE DIPROPIONATE
     Route: 055
  5. AMLODIPINE [Concomitant]
     Active Substance: AMLODIPINE BESYLATE
  6. CLOPIDOGREL [Concomitant]
     Active Substance: CLOPIDOGREL BISULFATE
  7. SALBUTAMOL [Concomitant]
     Active Substance: ALBUTEROL
     Route: 055
  8. FENTANYL. [Concomitant]
     Active Substance: FENTANYL
  9. EPHEDRINE. [Concomitant]
     Active Substance: EPHEDRINE
  10. ATORVASTATIN [Concomitant]
     Active Substance: ATORVASTATIN
  11. ONDANSETRON [Suspect]
     Active Substance: ONDANSETRON
     Indication: PROPHYLAXIS OF NAUSEA AND VOMITING
     Dosage: 2MG/ML; 4 MG
     Route: 042
     Dates: start: 20191210
  12. MORPHINE [Concomitant]
     Active Substance: MORPHINE
  13. PROPOFOL. [Concomitant]
     Active Substance: PROPOFOL

REACTIONS (5)
  - Asthenia [Recovered/Resolved]
  - Locked-in syndrome [Recovered/Resolved]
  - Unresponsive to stimuli [Recovered/Resolved]
  - Hyporeflexia [Recovered/Resolved]
  - Disturbance in attention [Recovered/Resolved]

NARRATIVE: CASE EVENT DATE: 20191210
